FAERS Safety Report 18417041 (Version 5)
Quarter: 2022Q1

REPORT INFORMATION
  Report Type: Spontaneous
  Country: US (occurrence: US)
  Receive Date: 20201022
  Receipt Date: 20220321
  Transmission Date: 20220423
  Serious: Yes (Other)
  Sender: FDA-Public Use
  Company Number: US-PFIZER INC-2020333674

PATIENT
  Age: 45 Year
  Sex: Female

DRUGS (2)
  1. XELJANZ [Suspect]
     Active Substance: TOFACITINIB CITRATE
     Indication: Colitis ulcerative
     Dosage: 10 MG, 2X/DAY(TWICE DAILY)
     Route: 048
     Dates: start: 202006
  2. XELJANZ [Suspect]
     Active Substance: TOFACITINIB CITRATE
     Dosage: UNK
     Dates: start: 20200501

REACTIONS (9)
  - Haemorrhage [Recovered/Resolved]
  - Rectal haemorrhage [Unknown]
  - Product dose omission issue [Unknown]
  - Anorectal disorder [Recovering/Resolving]
  - Headache [Unknown]
  - Therapeutic response unexpected [Unknown]
  - Hair growth abnormal [Unknown]
  - Arthropathy [Unknown]
  - Abnormal faeces [Unknown]

NARRATIVE: CASE EVENT DATE: 20200101
